FAERS Safety Report 11706729 (Version 1)
Quarter: 2015Q4

REPORT INFORMATION
  Report Type: Spontaneous
  Country: US (occurrence: US)
  Receive Date: 20151104
  Receipt Date: 20151104
  Transmission Date: 20160304
  Serious: No
  Sender: FDA-Public Use
  Company Number: US-ELI_LILLY_AND_COMPANY-US201012002757

PATIENT
  Sex: Female
  Weight: 52.15 kg

DRUGS (3)
  1. ANTIHISTAMINES [Concomitant]
     Active Substance: ANTIHISTAMINES NOS
  2. FORTEO [Suspect]
     Active Substance: TERIPARATIDE
     Indication: OSTEOPOROSIS
     Dosage: UNK, UNKNOWN
     Route: 065
     Dates: start: 20101206, end: 20101215
  3. XOPENEX [Concomitant]
     Active Substance: LEVALBUTEROL HYDROCHLORIDE

REACTIONS (14)
  - Malaise [Unknown]
  - Inappropriate schedule of drug administration [Unknown]
  - Asthma [Recovered/Resolved]
  - Chest pain [Unknown]
  - Drug hypersensitivity [Unknown]
  - Migraine [Recovered/Resolved]
  - Dyspnoea [Unknown]
  - Nephrolithiasis [Unknown]
  - Head discomfort [Recovered/Resolved]
  - Decreased appetite [Unknown]
  - Gait disturbance [Unknown]
  - Unevaluable event [Unknown]
  - Injection site erythema [Unknown]
  - Nausea [Recovered/Resolved]

NARRATIVE: CASE EVENT DATE: 20101207
